FAERS Safety Report 14483630 (Version 1)
Quarter: 2018Q1

REPORT INFORMATION
  Report Type: Report from Study
  Country: None (occurrence: US)
  Receive Date: 20180205
  Receipt Date: 20180205
  Transmission Date: 20180509
  Serious: Yes (Hospitalization)
  Sender: FDA-Public Use
  Company Number: US-ABBVIE-18K-163-2239812-00

PATIENT
  Age: 75 Year
  Sex: Female
  Weight: 79.45 kg

DRUGS (1)
  1. HUMIRA [Suspect]
     Active Substance: ADALIMUMAB
     Indication: PRODUCT USED FOR UNKNOWN INDICATION
     Route: 058
     Dates: start: 201706

REACTIONS (10)
  - Asthma [Not Recovered/Not Resolved]
  - Secretion discharge [Unknown]
  - Hypoxia [Not Recovered/Not Resolved]
  - Hypokalaemia [Not Recovered/Not Resolved]
  - Atrial fibrillation [Not Recovered/Not Resolved]
  - Cough [Unknown]
  - Heart rate increased [Unknown]
  - Chronic obstructive pulmonary disease [Not Recovered/Not Resolved]
  - Arrhythmia [Unknown]
  - Acute myocardial infarction [Not Recovered/Not Resolved]

NARRATIVE: CASE EVENT DATE: 201801
